FAERS Safety Report 5885475-3 (Version None)
Quarter: 2008Q3

REPORT INFORMATION
  Report Type: 
  Country: None (occurrence: None)
  Receive Date: 20080916
  Receipt Date: 20080903
  Transmission Date: 20090109
  Serious: Yes (Hospitalization)
  Sender: FDA-Public Use
  Company Number: US-ELI_LILLY_AND_COMPANY-US200809000879

PATIENT
  Sex: Female

DRUGS (2)
  1. SYMBYAX [Suspect]
     Indication: DEPRESSION
     Dosage: 1 D/F, QOD
     Dates: start: 20071201
  2. PROZAC [Concomitant]

REACTIONS (14)
  - ACTIVITIES OF DAILY LIVING IMPAIRED [None]
  - BITE [None]
  - BRUXISM [None]
  - DELIRIUM [None]
  - FEAR [None]
  - FEELING ABNORMAL [None]
  - HALLUCINATION, VISUAL [None]
  - HYPERSOMNIA [None]
  - INJURY [None]
  - LOSS OF CONSCIOUSNESS [None]
  - NIGHTMARE [None]
  - ORAL PAIN [None]
  - PANIC ATTACK [None]
  - POISONING [None]
